FAERS Safety Report 5014141-1 (Version None)
Quarter: 2006Q2

REPORT INFORMATION
  Report Type: 
  Country: None (occurrence: None)
  Receive Date: 20060414
  Receipt Date: 20060106
  Transmission Date: 20061013
  Serious: No
  Sender: FDA-Public Use
  Company Number: 2006SP000104

PATIENT
  Age: 74 Year
  Sex: Male
  Weight: 79.3795 kg

DRUGS (6)
  1. LUNESTA [Suspect]
     Indication: INSOMNIA
     Dosage: SEE IMAGE
     Route: 048
     Dates: start: 20050801, end: 20051101
  2. LUNESTA [Suspect]
     Indication: INSOMNIA
     Dosage: SEE IMAGE
     Route: 048
     Dates: start: 20051101, end: 20051201
  3. GLUCOTROL [Concomitant]
  4. TOPROL-XL [Concomitant]
  5. ATORVASTATIN CALCIUM [Concomitant]
  6. ANTIDEPRESSANTS [Concomitant]

REACTIONS (1)
  - INSOMNIA [None]
